FAERS Safety Report 7308204-5 (Version None)
Quarter: 2011Q1

REPORT INFORMATION
  Report Type: 
  Country: None (occurrence: None)
  Receive Date: 20110223
  Receipt Date: 20110221
  Transmission Date: 20110831
  Serious: Yes (Hospitalization)
  Sender: FDA-Public Use
  Company Number: CO-ROCHE-760991

PATIENT
  Sex: Male

DRUGS (1)
  1. CELLCEPT [Suspect]
     Dosage: FRQUENCY: QD
     Route: 048
     Dates: start: 20101130

REACTIONS (2)
  - DIARRHOEA [None]
  - TRANSPLANT REJECTION [None]
